FAERS Safety Report 9311291 (Version 1)
Quarter: 2013Q2

REPORT INFORMATION
  Report Type: Spontaneous
  Country: JP (occurrence: JP)
  Receive Date: 20130528
  Receipt Date: 20130528
  Transmission Date: 20140414
  Serious: Yes (Death)
  Sender: FDA-Public Use
  Company Number: JP-ASTELLAS-2013JP006096

PATIENT
  Sex: Male

DRUGS (3)
  1. FUNGUARD [Suspect]
     Indication: SYSTEMIC MYCOSIS
     Dosage: UNK
     Route: 065
  2. TRIMETHOPRIM SULFAMETHOXAZOLE [Concomitant]
     Indication: ANTIFUNGAL PROPHYLAXIS
     Route: 065
  3. FLUCONAZOLE [Concomitant]
     Indication: INFECTION PROPHYLAXIS
     Dosage: 10 MG/KG, UNKNOWN/D
     Route: 048

REACTIONS (2)
  - Drug ineffective [Unknown]
  - Systemic mycosis [Fatal]
